FAERS Safety Report 11362477 (Version 1)
Quarter: 2015Q3

REPORT INFORMATION
  Report Type: Spontaneous
  Country: US (occurrence: US)
  Receive Date: 20150810
  Receipt Date: 20150810
  Transmission Date: 20151125
  Serious: Yes (Other)
  Sender: FDA-Public Use
  Company Number: US-GLAXOSMITHKLINE-US2015111895

PATIENT
  Age: 57 Year
  Sex: Female

DRUGS (4)
  1. METOPROLOL [Concomitant]
     Active Substance: METOPROLOL
  2. FENOFIBRATE. [Concomitant]
     Active Substance: FENOFIBRATE
  3. FLOVENT [Suspect]
     Active Substance: FLUTICASONE PROPIONATE
     Indication: DYSPNOEA
     Dosage: 2 PUFF(S), PRN
     Route: 055
     Dates: start: 2010
  4. LOVAZA [Suspect]
     Active Substance: OMEGA-3-ACID ETHYL ESTERS
     Indication: BLOOD CHOLESTEROL INCREASED
     Dosage: 1 G, BID
     Route: 048
     Dates: start: 2014

REACTIONS (19)
  - Hypertension [Not Recovered/Not Resolved]
  - Gingivitis [Not Recovered/Not Resolved]
  - Tooth loss [Not Recovered/Not Resolved]
  - Inflammation [Recovered/Resolved]
  - Mass [Unknown]
  - Surgery [Unknown]
  - Myocardial infarction [Recovered/Resolved]
  - Cardiac disorder [Not Recovered/Not Resolved]
  - Flatulence [Not Recovered/Not Resolved]
  - Bone pain [Recovered/Resolved]
  - Malaise [Unknown]
  - Tumour exudation [Unknown]
  - Skin cancer [Not Recovered/Not Resolved]
  - Rectal haemorrhage [Recovered/Resolved]
  - Blood cholesterol increased [Not Recovered/Not Resolved]
  - Tumour pain [Unknown]
  - Heart valve incompetence [Not Recovered/Not Resolved]
  - Infected neoplasm [Recovered/Resolved]
  - Lipoma [Unknown]

NARRATIVE: CASE EVENT DATE: 201505
